FAERS Safety Report 4355155-4 (Version None)
Quarter: 2004Q2

REPORT INFORMATION
  Report Type: 
  Country: None (occurrence: None)
  Receive Date: 20040510
  Receipt Date: 20040415
  Transmission Date: 20050107
  Serious: Yes (Hospitalization, Other)
  Sender: FDA-Public Use
  Company Number: 200412927US

PATIENT
  Age: 36 Year
  Sex: Male
  Weight: 90 kg

DRUGS (2)
  1. LOVENOX [Suspect]
     Indication: DEEP VEIN THROMBOSIS
     Dates: start: 20040405, end: 20040415
  2. COUMADIN [Concomitant]

REACTIONS (3)
  - ATRIAL THROMBOSIS [None]
  - COAGULATION TIME ABNORMAL [None]
  - PULMONARY EMBOLISM [None]
